FAERS Safety Report 7353812-9 (Version None)
Quarter: 2011Q1

REPORT INFORMATION
  Report Type: 
  Country: None (occurrence: None)
  Receive Date: 20110304
  Receipt Date: 20110218
  Transmission Date: 20110831
  Serious: Yes (Other)
  Sender: FDA-Public Use
  Company Number: 20110140

PATIENT
  Age: 9 Month
  Sex: Male

DRUGS (2)
  1. SODIUM BICARBONATE [Suspect]
     Indication: GASTROOESOPHAGEAL REFLUX DISEASE
     Dosage: ORAL
     Route: 048
     Dates: start: 20101201
  2. PREVACID [Suspect]
     Indication: GASTROOESOPHAGEAL REFLUX DISEASE
     Dosage: ORAL
     Route: 048
     Dates: start: 20101201

REACTIONS (3)
  - DYSPNOEA [None]
  - OFF LABEL USE [None]
  - PNEUMONIA [None]
